FAERS Safety Report 17591420 (Version 1)
Quarter: 2020Q1

REPORT INFORMATION
  Report Type: Spontaneous
  Country: US (occurrence: US)
  Receive Date: 20200327
  Receipt Date: 20200327
  Transmission Date: 20200409
  Serious: No
  Sender: FDA-Public Use
  Company Number: US-VERTEX PHARMACEUTICALS-2020-006353

PATIENT
  Age: 19 Year
  Sex: Female
  Weight: 51 kg

DRUGS (2)
  1. PULMOZYME [Concomitant]
     Active Substance: DORNASE ALFA
  2. TRIKAFTA [Suspect]
     Active Substance: ELEXACAFTOR\IVACAFTOR\TEZACAFTOR
     Indication: CYSTIC FIBROSIS
     Dosage: 100MG ELEXACAFTOR/50MG TEZACAFTOR/75MG IVACAFTOR/150MG IVACAFTOR, BID
     Route: 048
     Dates: start: 20200214

REACTIONS (4)
  - Headache [Unknown]
  - Abdominal pain [Unknown]
  - Constipation [Unknown]
  - Acne [Unknown]

NARRATIVE: CASE EVENT DATE: 202003
